FAERS Safety Report 19882853 (Version 2)
Quarter: 2021Q4

REPORT INFORMATION
  Report Type: Spontaneous
  Country: US (occurrence: US)
  Receive Date: 20210924
  Receipt Date: 20211025
  Transmission Date: 20220303
  Serious: Yes (Other)
  Sender: FDA-Public Use
  Company Number: US-009507513-2109USA005482

PATIENT
  Sex: Female

DRUGS (4)
  1. PRINIVIL [Suspect]
     Active Substance: LISINOPRIL
     Indication: Blood pressure abnormal
     Dosage: UNK, ONCE PER DAY
     Route: 048
     Dates: start: 2012, end: 2017
  2. MICARDIS [Suspect]
     Active Substance: TELMISARTAN
     Dosage: 40 MILLIGRAM
     Dates: start: 2019, end: 2020
  3. VITAMIN B12 [Concomitant]
     Active Substance: CYANOCOBALAMIN
     Dosage: UNK
  4. VITAMIN D3 [Concomitant]
     Active Substance: CHOLECALCIFEROL
     Dosage: UNK

REACTIONS (11)
  - Aortic stenosis [Unknown]
  - Dry throat [Recovered/Resolved]
  - Ear disorder [Recovered/Resolved]
  - Mental disorder [Recovered/Resolved]
  - Blood pressure increased [Unknown]
  - Throat irritation [Unknown]
  - Heart rate increased [Unknown]
  - Pharyngeal swelling [Unknown]
  - Dyspnoea [Unknown]
  - Drug hypersensitivity [Unknown]
  - Dry mouth [Recovered/Resolved]

NARRATIVE: CASE EVENT DATE: 20150101
